FAERS Safety Report 10416732 (Version 1)
Quarter: 2014Q3

REPORT INFORMATION
  Report Type: Spontaneous
  Country: CN (occurrence: CN)
  Receive Date: 20140828
  Receipt Date: 20140828
  Transmission Date: 20150326
  Serious: Yes (Hospitalization)
  Sender: FDA-Public Use
  Company Number: CN-PFIZER INC-2014237567

PATIENT
  Age: 20 Month
  Sex: Male
  Weight: 11 kg

DRUGS (2)
  1. ZITHROMAX [Suspect]
     Active Substance: AZITHROMYCIN DIHYDRATE
     Indication: PNEUMONIA MYCOPLASMAL
     Dosage: 100 MG, 1X/DAY
     Route: 041
     Dates: start: 20130928, end: 20131004
  2. IBUPROFEN. [Concomitant]
     Active Substance: IBUPROFEN
     Indication: PYREXIA
     Dosage: 5 ML, 1X/DAY
     Route: 048
     Dates: start: 20130925, end: 20131001

REACTIONS (2)
  - Atrioventricular block [Recovering/Resolving]
  - Arrhythmia [Recovering/Resolving]

NARRATIVE: CASE EVENT DATE: 20131003
